FAERS Safety Report 5005052-6 (Version None)
Quarter: 2006Q2

REPORT INFORMATION
  Report Type: 
  Country: None (occurrence: None)
  Receive Date: 20060512
  Receipt Date: 20060508
  Transmission Date: 20061013
  Serious: Yes (Death, Hospitalization)
  Sender: FDA-Public Use
  Company Number: HQWYE229109MAY06

PATIENT
  Age: 72 Year
  Sex: Female

DRUGS (10)
  1. RAPAMUNE [Suspect]
     Indication: PROPHYLAXIS AGAINST TRANSPLANT REJECTION
     Dosage: 5 MG 1X PER 1 DAY ORAL
     Route: 048
     Dates: start: 20060228
  2. PREDNISOLONE [Concomitant]
  3. ASPIRIN [Concomitant]
  4. FERROUS SULPHATE (FERROUS SULFATE) [Concomitant]
  5. LANSOPRAZOLE [Concomitant]
  6. MYCOPHENOLATE MOFETIL [Concomitant]
  7. POTASSIUM CHLORIDE [Concomitant]
  8. PHOSPHATE-SANDOZ (POTASSIUM BICARBONATE/SODIUM BICARBONATE/SODIUM PHOS [Concomitant]
  9. SEPTRA [Concomitant]
  10. SIMVASTATIN [Concomitant]

REACTIONS (8)
  - BLOOD CREATININE INCREASED [None]
  - CARDIAC ARREST [None]
  - CEREBRAL HAEMORRHAGE [None]
  - DIARRHOEA [None]
  - FALL [None]
  - GLASGOW COMA SCALE ABNORMAL [None]
  - UROSEPSIS [None]
  - VOMITING [None]
